FAERS Safety Report 20384945 (Version 3)
Quarter: 2022Q1

REPORT INFORMATION
  Report Type: Spontaneous
  Country: US (occurrence: US)
  Receive Date: 20220127
  Receipt Date: 20220311
  Transmission Date: 20220423
  Serious: No
  Sender: FDA-Public Use
  Company Number: US-PFIZER INC-2021227250

PATIENT
  Age: 67 Year
  Sex: Female
  Weight: 73.48 kg

DRUGS (3)
  1. ESTRING [Suspect]
     Active Substance: ESTRADIOL
     Indication: Vulvovaginal dryness
     Dosage: 7.5 MCG/24 HR; 1 RING EVERY 3 MONTHS
     Route: 067
  2. ESTRING [Suspect]
     Active Substance: ESTRADIOL
     Dosage: 2 GM 75 MCG/ 24 HRS , 1 RING PV, EVERY 3 MONTHS
  3. BUPROPION [Concomitant]
     Active Substance: BUPROPION

REACTIONS (4)
  - Cardiac disorder [Unknown]
  - Device difficult to use [Unknown]
  - Product dose omission issue [Unknown]
  - Product prescribing error [Unknown]
